FAERS Safety Report 19092616 (Version 1)
Quarter: 2021Q2

REPORT INFORMATION
  Report Type: Report from Study
  Country: CZ (occurrence: CZ)
  Receive Date: 20210405
  Receipt Date: 20210405
  Transmission Date: 20210717
  Serious: Yes (Other)
  Sender: FDA-Public Use
  Company Number: CZ-MYLANLABS-2021M1019356

PATIENT
  Age: 56 Year
  Sex: Female

DRUGS (6)
  1. HULIO [Suspect]
     Active Substance: ADALIMUMAB-FKJP
     Indication: RHEUMATOID ARTHRITIS
     Dosage: 40 MILLIGRAM, BIMONTHLY
     Route: 058
     Dates: start: 20200727, end: 20210120
  2. PREDNISOLON                        /00016201/ [Concomitant]
     Active Substance: PREDNISOLONE
     Indication: RHEUMATOID ARTHRITIS
     Dosage: 5 MILLIGRAM, QD
     Dates: start: 20201030, end: 20210120
  3. PREDNISOLON                        /00016201/ [Concomitant]
     Active Substance: PREDNISOLONE
     Dosage: 10 MILLIGRAM, QD
     Dates: start: 20210121
  4. HULIO [Suspect]
     Active Substance: ADALIMUMAB-FKJP
     Dosage: 40 MILLIGRAM, 3XMONTHS
     Route: 058
     Dates: start: 20210121, end: 20210312
  5. METHOTREXATE. [Concomitant]
     Active Substance: METHOTREXATE
     Indication: RHEUMATOID ARTHRITIS
     Dosage: 20 MILLIGRAM, QW
     Dates: start: 20190301, end: 20210120
  6. METHOTREXATE. [Concomitant]
     Active Substance: METHOTREXATE
     Dosage: 25 MILLIGRAM, QW
     Dates: start: 20210121

REACTIONS (1)
  - Drug ineffective [Unknown]

NARRATIVE: CASE EVENT DATE: 20210312
